FAERS Safety Report 8115943-5 (Version None)
Quarter: 2012Q1

REPORT INFORMATION
  Report Type: 
  Country: None (occurrence: None)
  Receive Date: 20120118
  Receipt Date: 20120104
  Transmission Date: 20120608
  Serious: Yes (Hospitalization)
  Sender: FDA-Public Use
  Company Number: 2011PROUSA00867

PATIENT
  Age: 69 Year
  Sex: Male
  Weight: 101.6 kg

DRUGS (16)
  1. LORAZEPAM [Concomitant]
  2. FLOMAX [Concomitant]
  3. CALCIUM CARBONATE W/MAGNESIUM (CALCIUM CARBONATE MAGNESIUM) [Concomitant]
  4. FLUTICASONE PROPIONATE [Concomitant]
  5. REMERON [Concomitant]
  6. PROVENGE [Suspect]
     Indication: PROSTATE CANCER METASTATIC
     Dosage: 250 ML, SINGLE, INTRAVENOUS, 250 ML, SINGLE, INTRAVENOUS
     Route: 042
     Dates: start: 20111117, end: 20111117
  7. PROVENGE [Suspect]
     Indication: PROSTATE CANCER METASTATIC
     Dosage: 250 ML, SINGLE, INTRAVENOUS, 250 ML, SINGLE, INTRAVENOUS
     Route: 042
     Dates: start: 20111201, end: 20111201
  8. ANUSOL-HC (HYDROCORTISONE ACETATE) [Concomitant]
  9. CHOLECALCIFEROL (COLECALCIFEROL) [Concomitant]
  10. ADVAIR HFA [Concomitant]
  11. PHENERGAN [Concomitant]
  12. PROVENGE [Suspect]
  13. HYOSCYAMINE SULFATE (HYOSCYAMINE SULFATE) [Concomitant]
  14. CASODEX [Concomitant]
  15. POLYETHYLENE GLYCOL 3350 (MACROGOL 3350) [Concomitant]
  16. ELIGARD [Concomitant]

REACTIONS (12)
  - FIBRIN D DIMER INCREASED [None]
  - PNEUMONIA [None]
  - OEDEMA [None]
  - CAROTID ARTERY STENOSIS [None]
  - CEREBROVASCULAR ACCIDENT [None]
  - DEVICE RELATED SEPSIS [None]
  - ANXIETY [None]
  - CEREBRAL INFARCTION [None]
  - TRICUSPID VALVE INCOMPETENCE [None]
  - STAPHYLOCOCCUS TEST POSITIVE [None]
  - DIASTOLIC DYSFUNCTION [None]
  - BLOOD GLUCOSE INCREASED [None]
